FAERS Safety Report 5404167-8 (Version None)
Quarter: 2007Q3

REPORT INFORMATION
  Report Type: 
  Country: None (occurrence: None)
  Receive Date: 20070802
  Receipt Date: 20070731
  Transmission Date: 20080115
  Serious: Yes (Other)
  Sender: FDA-Public Use
  Company Number: DE-BRISTOL-MYERS SQUIBB COMPANY-13862446

PATIENT
  Age: 40 Year
  Sex: Female

DRUGS (1)
  1. VOLON-A INJ 40 MG [Suspect]
     Route: 030
     Dates: start: 20070412

REACTIONS (2)
  - HAEMATOMA [None]
  - SKIN ATROPHY [None]
